FAERS Safety Report 4380344-2 (Version None)
Quarter: 2004Q2

REPORT INFORMATION
  Report Type: 
  Country: None (occurrence: None)
  Receive Date: 20040616
  Receipt Date: 20040616
  Transmission Date: 20050107
  Serious: Yes (Hospitalization, Other)
  Sender: FDA-Public Use
  Company Number: None

PATIENT
  Age: 66 Year
  Sex: Female
  Weight: 99.9 kg

DRUGS (10)
  1. INTEGRILIN [Suspect]
     Indication: ANTIPLATELET THERAPY
     Dosage: 2 (9 ML BOLUSES)8.0 MLHR IV
     Route: 042
     Dates: start: 20040604, end: 20040605
  2. HEPARIN [Suspect]
     Dosage: 5,000 UNITS IV
     Route: 042
     Dates: start: 20040604
  3. MIDAZOLAM HCL [Concomitant]
  4. FENTANYL [Concomitant]
  5. LIDOCAINE [Concomitant]
  6. CEFAZIDINE [Concomitant]
  7. ASPIRIN [Concomitant]
  8. PEPCID [Concomitant]
  9. CLOPIDOGREL BISULFATE [Concomitant]
  10. ACETYLCYSTEINE [Concomitant]

REACTIONS (3)
  - BACK PAIN [None]
  - NAUSEA [None]
  - POST PROCEDURAL HAEMATOMA [None]
